APPROVED DRUG PRODUCT: DEXAMETHASONE
Active Ingredient: DEXAMETHASONE
Strength: 2MG
Dosage Form/Route: TABLET;ORAL
Application: A217696 | Product #001 | TE Code: AB
Applicant: NOVITIUM PHARMA LLC
Approved: May 9, 2023 | RLD: No | RS: No | Type: RX